FAERS Safety Report 9227778 (Version 1)
Quarter: 2013Q2

REPORT INFORMATION
  Report Type: Spontaneous
  Country: DE (occurrence: DE)
  Receive Date: 20130412
  Receipt Date: 20130412
  Transmission Date: 20140414
  Serious: Yes (Other)
  Sender: FDA-Public Use
  Company Number: PHHY2013DE034619

PATIENT
  Sex: 0
  Weight: 52 kg

DRUGS (2)
  1. GILENYA [Suspect]
     Dosage: 0.5 MG, QD
     Route: 048
     Dates: start: 201109, end: 20130227
  2. CORTISONE [Suspect]
     Dates: start: 201301

REACTIONS (20)
  - Suicidal ideation [Recovering/Resolving]
  - Confusional state [Recovering/Resolving]
  - Feeling abnormal [Recovering/Resolving]
  - Speech disorder [Recovering/Resolving]
  - Photophobia [Recovering/Resolving]
  - Staring [Recovering/Resolving]
  - Miosis [Recovering/Resolving]
  - Eye disorder [Recovering/Resolving]
  - Hypokinesia [Recovering/Resolving]
  - Hearing impaired [Recovering/Resolving]
  - Anxiety [Recovering/Resolving]
  - Syncope [Recovering/Resolving]
  - Nausea [Recovering/Resolving]
  - Gait disturbance [Recovering/Resolving]
  - Depressed mood [Recovering/Resolving]
  - Feeling of despair [Recovering/Resolving]
  - Tearfulness [Recovering/Resolving]
  - Decreased appetite [Recovering/Resolving]
  - Eye pain [Recovering/Resolving]
  - Vision blurred [Recovering/Resolving]
